FAERS Safety Report 16246313 (Version 2)
Quarter: 2020Q4

REPORT INFORMATION
  Report Type: Report from Study
  Country: US (occurrence: US)
  Receive Date: 20190426
  Receipt Date: 20201120
  Transmission Date: 20210113
  Serious: Yes (Hospitalization)
  Sender: FDA-Public Use
  Company Number: US-ROCHE-2195160

PATIENT
  Age: 21 Year
  Sex: Male
  Weight: 80.6 kg

DRUGS (4)
  1. ATEZOLIZUMAB. [Suspect]
     Active Substance: ATEZOLIZUMAB
     Indication: ADENOCARCINOMA OF COLON
     Dosage: MOST RECENT DOSE PRIOR TO SERIOUS ADVERSE EVENT: 23/MAY/2018
     Route: 042
     Dates: start: 20180508, end: 20180523
  2. OXALIPLATIN. [Suspect]
     Active Substance: OXALIPLATIN
     Indication: ADENOCARCINOMA OF COLON
     Dosage: MOST RECENT DOSE PRIOR TO SERIOUS ADVERSE EVENT: 23/MAY/2018?85MG/M2 IV OVER 2 HOURS ON DAY 1
     Route: 042
     Dates: start: 20180423, end: 20180523
  3. CALCIUM FOLINATE [Suspect]
     Active Substance: LEUCOVORIN CALCIUM
     Indication: ADENOCARCINOMA OF COLON
     Dosage: MOST RECENT DOSE PRIOR TO SERIOUS ADVERSE EVENT: 23/MAY/2018?400MG/M2 IV OVER 2 HOURS ON DAY 1
     Route: 042
     Dates: start: 20180423, end: 20180523
  4. 5-FLUOROURACIL [Suspect]
     Active Substance: FLUOROURACIL
     Indication: ADENOCARCINOMA OF COLON
     Dosage: MOST RECENT DOSE PRIOR TO SERIOUS ADVERSE EVENT: 23/MAY/2018?400MG/M2 IV (BOLUS) ON DAY 1 FOLLOWED B
     Route: 042
     Dates: start: 20180423, end: 20180523

REACTIONS (4)
  - Abdominal pain [Recovered/Resolved]
  - Enterocolitis [Recovered/Resolved]
  - Colitis [Recovered/Resolved]
  - Ileus [Recovered/Resolved]

NARRATIVE: CASE EVENT DATE: 20180526
